FAERS Safety Report 8789590 (Version 1)
Quarter: 2012Q4

REPORT INFORMATION
  Report Type: Spontaneous
  Country: US (occurrence: None)
  Receive Date: 20120910
  Receipt Date: 20120910
  Transmission Date: 20130627
  Serious: Yes (Life-Threatening, Disabling, Other)
  Sender: FDA-Public Use
  Company Number: None

PATIENT
  Age: 70 Year
  Sex: Female
  Weight: 74.84 kg

DRUGS (3)
  1. CYMBALTA [Suspect]
     Indication: FIBROMYALGIA
     Dosage: 16may2012-seven horror filled days!
Abated very slowly!
Lingered for weeks
I still have it! Want to burn it!
     Route: 048
     Dates: start: 20120516
  2. CYMBALTA [Suspect]
     Indication: BIPOLAR DEPRESSION
     Dosage: 16may2012-seven horror filled days!
Abated very slowly!
Lingered for weeks
I still have it! Want to burn it!
     Route: 048
     Dates: start: 20120516
  3. CYMBALTA [Suspect]
     Dosage: 16may2012-seven horror filled days!
Abated very slowly!
Lingered for weeks
I still have it! Want to burn it!
     Route: 048
     Dates: start: 20120516

REACTIONS (3)
  - Mental disorder [None]
  - Anxiety [None]
  - Drug ineffective [None]
